FAERS Safety Report 4397796-4 (Version None)
Quarter: 2004Q3

REPORT INFORMATION
  Report Type: 
  Country: None (occurrence: None)
  Receive Date: 20040713
  Receipt Date: 20040629
  Transmission Date: 20050211
  Serious: Yes (Hospitalization)
  Sender: FDA-Public Use
  Company Number: US-JNJFOC-20040700235

PATIENT
  Age: 60 Year
  Sex: Female
  Weight: 74.8435 kg

DRUGS (21)
  1. INFLIXIMAB (INFLIXIMAB, RECOMBINANT) LYOPHILIZED POWDER [Suspect]
     Indication: RHEUMATOID ARTHRITIS
     Dosage: 500 MG, 1 IN 8 WEEK, INTRAVENOUS
     Route: 042
     Dates: start: 20010402, end: 20040114
  2. ACTONEL [Concomitant]
  3. KLOR-CON [Concomitant]
  4. CELEBREX [Concomitant]
  5. PREDNISONE TAB [Concomitant]
  6. FUROSEMIDE [Concomitant]
  7. DILTIAZEM [Concomitant]
  8. ZOCOR [Concomitant]
  9. METOPROLOL (METOPROLOL) [Concomitant]
  10. AMITRIPTYLINE HCL [Concomitant]
  11. TEMAZEPAM [Concomitant]
  12. DOCUSATE SODIUM (DOCUSATE SODIUM) [Concomitant]
  13. LORAZEPAM [Concomitant]
  14. CALCIUM + D (CALCIUM) [Concomitant]
  15. ASPIRIN [Concomitant]
  16. ALBUTEROL [Concomitant]
  17. ATROVENT [Concomitant]
  18. SEREVENT [Concomitant]
  19. OXYGEN THERAPY (OXYGEN) [Concomitant]
  20. HUMIRA [Concomitant]
  21. INSULIN [Concomitant]

REACTIONS (7)
  - ACUTE RESPIRATORY FAILURE [None]
  - CHRONIC OBSTRUCTIVE AIRWAYS DISEASE EXACERBATED [None]
  - LUNG INFECTION PSEUDOMONAL [None]
  - LUNG INFILTRATION [None]
  - PLEURAL EFFUSION [None]
  - PNEUMONIA STAPHYLOCOCCAL [None]
  - WHITE BLOOD CELL COUNT INCREASED [None]
